FAERS Safety Report 19858999 (Version 1)
Quarter: 2021Q3

REPORT INFORMATION
  Report Type: Spontaneous
  Country: None (occurrence: US)
  Receive Date: 20210920
  Receipt Date: 20210920
  Transmission Date: 20211014
  Serious: Yes (Hospitalization)
  Sender: FDA-Public Use
  Company Number: None

PATIENT
  Sex: Male

DRUGS (18)
  1. SILDENAFIL 20MG TAB [Suspect]
     Active Substance: SILDENAFIL
     Indication: PULMONARY HYPERTENSION
     Route: 048
     Dates: start: 20200926
  2. DIGOXIN. [Concomitant]
     Active Substance: DIGOXIN
  3. TRAZODONE [Concomitant]
     Active Substance: TRAZODONE HYDROCHLORIDE
  4. OMEPRAZOLE. [Concomitant]
     Active Substance: OMEPRAZOLE
  5. METOPROL TAR [Concomitant]
  6. MOMETASONE [Concomitant]
     Active Substance: MOMETASONE
  7. FERROUS SULFATE. [Concomitant]
     Active Substance: FERROUS SULFATE
  8. FENOFIBRATE. [Concomitant]
     Active Substance: FENOFIBRATE
  9. LEVOTHYROXIN [Concomitant]
     Active Substance: LEVOTHYROXINE
  10. METOPROL SUC [Concomitant]
  11. TORSEMIDE. [Concomitant]
     Active Substance: TORSEMIDE
  12. VASCEPA [Concomitant]
     Active Substance: ICOSAPENT ETHYL
  13. AMIODARONE [Concomitant]
     Active Substance: AMIODARONE
  14. XARELTO [Concomitant]
     Active Substance: RIVAROXABAN
  15. ENTRESTO [Concomitant]
     Active Substance: SACUBITRIL\VALSARTAN
  16. ZETIA [Concomitant]
     Active Substance: EZETIMIBE
  17. METFORMIN [Concomitant]
     Active Substance: METFORMIN HYDROCHLORIDE
  18. RANEXA [Concomitant]
     Active Substance: RANOLAZINE

REACTIONS (1)
  - Cardiac failure congestive [None]
